FAERS Safety Report 8379386-1 (Version None)
Quarter: 2012Q2

REPORT INFORMATION
  Report Type: 
  Country: None (occurrence: None)
  Receive Date: 20120523
  Receipt Date: 20120517
  Transmission Date: 20120825
  Serious: Yes (Hospitalization, Other)
  Sender: FDA-Public Use
  Company Number: US-BAYER-2011-010925

PATIENT
  Age: 25 Year
  Sex: Female
  Weight: 68 kg

DRUGS (13)
  1. DOXYCYCLINE [Concomitant]
     Dosage: 100 MG, ONCE
     Dates: start: 20100101
  2. PROBIOTICS [Concomitant]
  3. PROZAC [Concomitant]
     Dosage: 40 MG, QD
     Route: 048
  4. SLACKER II [Concomitant]
  5. ACAI BERRY [Concomitant]
  6. VENLAFAXINE [Concomitant]
     Indication: MOOD ALTERED
     Dosage: 37.5 MG, UNK
     Route: 048
     Dates: start: 20100101
  7. EFFEXOR [Concomitant]
     Indication: ANXIETY
     Dosage: UNK
     Route: 048
     Dates: start: 20100101, end: 20110301
  8. IBUPROFEN [Concomitant]
     Dosage: 800 MG, PRN
     Dates: start: 20100101
  9. PROZAC [Concomitant]
     Dosage: 20 MG, QD
     Route: 048
  10. SEROQUEL [Concomitant]
     Indication: INSOMNIA
     Dosage: 300 MG, ONCE
     Route: 048
     Dates: start: 20100101, end: 20110301
  11. MISOPROSTOL [Concomitant]
     Indication: ABORTION
     Dosage: 200 MG, BID
     Route: 048
     Dates: start: 20091201, end: 20100101
  12. YAZ [Suspect]
     Indication: CONTRACEPTION
     Dosage: UNK
     Dates: start: 20091201, end: 20100101
  13. HYDROCODONE [Concomitant]
     Dosage: UNK
     Route: 048
     Dates: start: 20091201, end: 20100101

REACTIONS (5)
  - PULMONARY EMBOLISM [None]
  - PAIN [None]
  - ANXIETY [None]
  - DEEP VEIN THROMBOSIS [None]
  - INJURY [None]
